FAERS Safety Report 7540511-3 (Version None)
Quarter: 2011Q2

REPORT INFORMATION
  Report Type: 
  Country: None (occurrence: None)
  Receive Date: 20110610
  Receipt Date: 20110606
  Transmission Date: 20111010
  Serious: Yes (Hospitalization)
  Sender: FDA-Public Use
  Company Number: A0930399A

PATIENT
  Age: 58 Year
  Sex: Male

DRUGS (7)
  1. SPIRONOLACTONE [Concomitant]
  2. COREG CR [Suspect]
     Indication: CARDIAC FAILURE CONGESTIVE
     Dosage: 25MG PER DAY
     Route: 048
     Dates: start: 19970701
  3. LASIX [Concomitant]
  4. LOVAZA [Suspect]
     Indication: BLOOD TRIGLYCERIDES INCREASED
     Dosage: 2CAP TWICE PER DAY
     Route: 048
     Dates: start: 19970701
  5. SIMVASTATIN [Concomitant]
  6. ASPIRIN [Concomitant]
  7. ALLOPURINOL [Concomitant]

REACTIONS (3)
  - TACHYCARDIA [None]
  - CARDIAC DISORDER [None]
  - DYSPNOEA [None]
